FAERS Safety Report 21179578 (Version 1)
Quarter: 2022Q3

REPORT INFORMATION
  Report Type: Spontaneous
  Country: US (occurrence: None)
  Receive Date: 20220805
  Receipt Date: 20220805
  Transmission Date: 20221027
  Serious: Yes (Life-Threatening, Hospitalization)
  Sender: FDA-Public Use
  Company Number: None

PATIENT
  Age: 51 Year
  Sex: Male
  Weight: 64.86 kg

DRUGS (1)
  1. TETRACYCLINE HYDROCHLORIDE [Suspect]
     Active Substance: TETRACYCLINE HYDROCHLORIDE
     Dosage: FREQUENCY : TWICE A DAY;?
     Route: 048
     Dates: start: 20220406, end: 20220518

REACTIONS (5)
  - Diabetic ketoacidosis [None]
  - Pancreatitis necrotising [None]
  - Anal abscess [None]
  - Anal fistula [None]
  - Cholestasis [None]

NARRATIVE: CASE EVENT DATE: 20220518
